FAERS Safety Report 19103857 (Version 3)
Quarter: 2021Q2

REPORT INFORMATION
  Report Type: Spontaneous
  Country: DE (occurrence: DE)
  Receive Date: 20210407
  Receipt Date: 20210630
  Transmission Date: 20210717
  Serious: Yes (Death, Life-Threatening, Hospitalization, Other)
  Sender: FDA-Public Use
  Company Number: NVSC2021DE076885

PATIENT
  Age: 55 Year
  Sex: Female
  Weight: 70 kg

DRUGS (7)
  1. MEROPENEM. [Concomitant]
     Active Substance: MEROPENEM
     Indication: NECROTISING FASCIITIS
     Dosage: UNK
     Route: 065
     Dates: start: 20201210, end: 20201220
  2. CEFTRIAXON [Concomitant]
     Active Substance: CEFTRIAXONE
     Indication: PYELONEPHRITIS
     Dosage: UNK
     Route: 065
     Dates: start: 20210103, end: 20210111
  3. LINEZOLID. [Suspect]
     Active Substance: LINEZOLID
     Indication: OSTEOMYELITIS
     Dosage: UNK
     Route: 065
  4. CEFTRIAXON [Concomitant]
     Active Substance: CEFTRIAXONE
     Indication: URINARY TRACT INFECTION
  5. MEROPENEM. [Concomitant]
     Active Substance: MEROPENEM
     Indication: DECUBITUS ULCER
     Dosage: UNK (LAST DOSE DATE: 10 MAR 2021
     Route: 065
     Dates: start: 20210309
  6. LINEZOLID. [Suspect]
     Active Substance: LINEZOLID
     Indication: ENTEROCOCCAL INFECTION
     Dosage: 600 MG, Q12H (1200 MILLIGRAM DAILY; 1?0?1)
     Route: 048
     Dates: start: 20210128, end: 20210309
  7. CLINDAMYCIN. [Concomitant]
     Active Substance: CLINDAMYCIN
     Indication: STAPHYLOCOCCAL BACTERAEMIA
     Dosage: 2700 MILLIGRAM DAILY; 1?1?1
     Route: 065
     Dates: start: 20210122, end: 20210128

REACTIONS (10)
  - Multiple organ dysfunction syndrome [Fatal]
  - Lactic acidosis [Fatal]
  - Anaemia [Fatal]
  - Renal failure [Fatal]
  - Metabolic acidosis [Fatal]
  - Respiratory failure [Fatal]
  - Circulatory collapse [Fatal]
  - Thrombocytopenia [Fatal]
  - Oliguria [Fatal]
  - Sepsis [Fatal]

NARRATIVE: CASE EVENT DATE: 2021
